FAERS Safety Report 10225201 (Version 4)
Quarter: 2014Q3

REPORT INFORMATION
  Report Type: Report from Study
  Country: CA (occurrence: CA)
  Receive Date: 20140609
  Receipt Date: 20140729
  Transmission Date: 20150326
  Serious: Yes (Death, Other)
  Sender: FDA-Public Use
  Company Number: CA-TEVA-486724USA

PATIENT

DRUGS (2)
  1. BENDAMUSTINE [Suspect]
     Active Substance: BENDAMUSTINE
     Indication: CHRONIC LYMPHOCYTIC LEUKAEMIA
     Dosage: 100 MG/M2, ON DAY 1 AND 2 EVERY 28 DAYS UPTO 6 CYCLES (CYCLIC)
     Route: 065
  2. BENDAMUSTINE [Suspect]
     Active Substance: BENDAMUSTINE
     Indication: NON-HODGKIN^S LYMPHOMA
     Dosage: 120 MG/M2, ON DAY 1 AND 2 EVERY 21 TO 28 DAYS UPTO 8 CYCLES (CYCLIC)
     Route: 065

REACTIONS (13)
  - Syncope [Unknown]
  - Hypotension [Unknown]
  - Renal failure [Unknown]
  - Pneumocystis jirovecii pneumonia [Fatal]
  - Multi-organ failure [Fatal]
  - Gastrointestinal disorder [Unknown]
  - Pyrexia [Unknown]
  - Respiratory failure [Fatal]
  - Tumour lysis syndrome [Unknown]
  - Abdominal pain [Fatal]
  - Cardiac arrest [Fatal]
  - Febrile neutropenia [Unknown]
  - Pneumonia [Unknown]
